FAERS Safety Report 23493073 (Version 1)
Quarter: 2024Q1

REPORT INFORMATION
  Report Type: Report from Study
  Country: CA (occurrence: CA)
  Receive Date: 20240207
  Receipt Date: 20240207
  Transmission Date: 20240409
  Serious: Yes (Hospitalization, Other)
  Sender: FDA-Public Use
  Company Number: CA-TAKEDA-2024TUS010509

PATIENT
  Sex: Male

DRUGS (3)
  1. VEDOLIZUMAB [Suspect]
     Active Substance: VEDOLIZUMAB
     Indication: Colitis ulcerative
     Dosage: 300 MILLIGRAM
     Route: 042
     Dates: start: 20220418
  2. CLONAZEPAM [Concomitant]
     Active Substance: CLONAZEPAM
     Dosage: 0.05 MILLIGRAM
     Route: 048
  3. PREVACID [Concomitant]
     Active Substance: LANSOPRAZOLE
     Dosage: UNK
     Route: 048

REACTIONS (4)
  - Brain injury [Recovered/Resolved with Sequelae]
  - Fall [Recovered/Resolved with Sequelae]
  - Conjunctival haemorrhage [Recovering/Resolving]
  - Headache [Recovered/Resolved with Sequelae]
